FAERS Safety Report 7843993-2 (Version None)
Quarter: 2011Q4

REPORT INFORMATION
  Report Type: 
  Country: None (occurrence: None)
  Receive Date: 20111025
  Receipt Date: 20111019
  Transmission Date: 20120403
  Serious: Yes (Hospitalization)
  Sender: FDA-Public Use
  Company Number: US-B.I. PHARMACEUTICALS,INC./RIDGEFIELD-2011-DE-05332GL

PATIENT
  Sex: Male

DRUGS (3)
  1. TEMISARTAN [Suspect]
     Indication: HYPERTENSION
     Dosage: 80 MG
     Route: 048
     Dates: start: 20090101, end: 20110708
  2. CARVEDILOL [Suspect]
     Indication: HYPERTENSION
     Dosage: 50 MG
     Route: 048
     Dates: start: 20101129, end: 20110708
  3. BLINDED VACCINE INJECTION [Suspect]
     Route: 030
     Dates: start: 20110503, end: 20110503

REACTIONS (3)
  - ORTHOSTATIC HYPOTENSION [None]
  - CYSTITIS KLEBSIELLA [None]
  - RENAL FAILURE ACUTE [None]
